FAERS Safety Report 4897980-7 (Version None)
Quarter: 2006Q1

REPORT INFORMATION
  Report Type: 
  Country: None (occurrence: None)
  Receive Date: 20060130
  Receipt Date: 20060113
  Transmission Date: 20060701
  Serious: Yes (Hospitalization, Disabling)
  Sender: FDA-Public Use
  Company Number: 416085

PATIENT
  Age: 17 Year
  Sex: Female
  Weight: 72.6 kg

DRUGS (1)
  1. ACCUTANE [Suspect]
     Indication: ACNE
     Dosage: ORAL
     Route: 048
     Dates: start: 19941015, end: 19941115

REACTIONS (53)
  - ACCIDENT [None]
  - ALCOHOLISM [None]
  - ANAEMIA [None]
  - ANAL FISSURE [None]
  - BACK INJURY [None]
  - BILIARY DYSKINESIA [None]
  - BLOOD CHOLESTEROL INCREASED [None]
  - CHOLECYSTITIS [None]
  - COLITIS ISCHAEMIC [None]
  - COLITIS ULCERATIVE [None]
  - CONTRAST MEDIA REACTION [None]
  - DEPRESSION [None]
  - DIZZINESS [None]
  - DYSPEPSIA [None]
  - EJECTION FRACTION DECREASED [None]
  - EXCORIATION [None]
  - FALL [None]
  - GALLBLADDER DISORDER [None]
  - GASTRIC ULCER PERFORATION [None]
  - GASTRITIS [None]
  - GASTROINTESTINAL DISORDER [None]
  - GASTROOESOPHAGEAL REFLUX DISEASE [None]
  - GENERALISED ANXIETY DISORDER [None]
  - GENITAL DISCHARGE [None]
  - HAEMORRHOIDS [None]
  - HEADACHE [None]
  - HORMONE LEVEL ABNORMAL [None]
  - HYPOGLYCAEMIA [None]
  - ILEUS [None]
  - INFLAMMATORY BOWEL DISEASE [None]
  - INFLUENZA [None]
  - INTESTINAL HAEMORRHAGE [None]
  - IRRITABLE BOWEL SYNDROME [None]
  - JOINT SPRAIN [None]
  - LYMPHOID TISSUE HYPERPLASIA [None]
  - MENOPAUSAL SYMPTOMS [None]
  - MIGRAINE [None]
  - MOOD ALTERED [None]
  - MULTI-ORGAN DISORDER [None]
  - OVARIAN CYST [None]
  - PERINEAL OPERATION [None]
  - PHOTOPHOBIA [None]
  - PROCEDURAL PAIN [None]
  - PROCTITIS ULCERATIVE [None]
  - RASH [None]
  - RECTAL HAEMORRHAGE [None]
  - RENAL CYST [None]
  - SINUSITIS [None]
  - SKIN LACERATION [None]
  - TENSION HEADACHE [None]
  - THREATENED LABOUR [None]
  - TONSILLITIS [None]
  - VULVOVAGINAL MYCOTIC INFECTION [None]
